FAERS Safety Report 18011515 (Version 3)
Quarter: 2021Q3

REPORT INFORMATION
  Report Type: Spontaneous
  Country: DE (occurrence: DE)
  Receive Date: 20200713
  Receipt Date: 20210913
  Transmission Date: 20211014
  Serious: Yes (Hospitalization, Congenital Anomaly)
  Sender: FDA-Public Use
  Company Number: DE-CELLTRION INC.-2020DE024043

PATIENT

DRUGS (13)
  1. FILGRASTIM [Suspect]
     Active Substance: FILGRASTIM
     Indication: DRUG THERAPY
     Dosage: ON DAYS 6?11 PRENATAL PHASE; 10 UG/KG DAILY
     Route: 064
  2. CYTARABINE. [Suspect]
     Active Substance: CYTARABINE
     Indication: PROPHYLAXIS
     Dosage: ON DAYS 2 AND 6 PRENATAL PHASE
     Route: 064
  3. RITUXIMAB. [Suspect]
     Active Substance: RITUXIMAB
     Dosage: OVER 3 HOURS ON DAY 1 OF 21 DAYS CYCLE (AS A PART OF R?CHOEP REGIMEN)
     Route: 064
  4. VINCRISTINE [Suspect]
     Active Substance: VINCRISTINE
     Indication: BURKITT^S LYMPHOMA
     Dosage: ON DAY 2 OF 21 DAYS CYCLE (PRENATAL PHASE) ( AS A PART OF R?CHOEP REGIMEN)
     Route: 064
  5. MESNA. [Suspect]
     Active Substance: MESNA
     Indication: DRUG THERAPY
     Dosage: AT 0, 4, AND 8 HOURS AFTER CYCLOPHOSPHAMIDE (CPA) DAY 2 PRENATAL PHASE
     Route: 064
  6. CYTARABINE. [Suspect]
     Active Substance: CYTARABINE
     Indication: BURKITT^S LYMPHOMA
     Dosage: OVER 1 HOUR EVERY 12 HOURS ON DAYS 2?6 OF 21 DAYS CYCLE (PRENATAL PHASE)
     Route: 064
  7. DEXAMETHASONE. [Suspect]
     Active Substance: DEXAMETHASONE
     Indication: PROPHYLAXIS
  8. CYCLOPHOSPHAMIDE. [Suspect]
     Active Substance: CYCLOPHOSPHAMIDE
     Indication: BURKITT^S LYMPHOMA
     Dosage: OVER 1 HOUR ON DAY 1 OF 21 DAYS CYCLE ( AS A PART OF R?CHOEP REGIMEN)
     Route: 064
  9. RITUXIMAB. [Suspect]
     Active Substance: RITUXIMAB
     Indication: BURKITT^S LYMPHOMA
     Dosage: OVER 3 HOURS ON DAY 1 PRENATAL PHASE
     Route: 064
  10. PREDNISOLONE. [Suspect]
     Active Substance: PREDNISOLONE
     Indication: BURKITT^S LYMPHOMA
     Dosage: ON DAYS 2?5 OF 21 DAYS CYCLE (PRENATAL PHASE) ( AS A PART OF R?CHOEP REGIMEN)
     Route: 064
  11. ETOPOSIDE. [Suspect]
     Active Substance: ETOPOSIDE
     Indication: BURKITT^S LYMPHOMA
     Dosage: OVER 1 HOUR ON DAYS 2?4  OF 21 DAYS CYCLE (PRENATAL PHASE) ( AS A PART OF R?CHOEP REGIMEN)
     Route: 064
  12. DEXAMETHASONE. [Suspect]
     Active Substance: DEXAMETHASONE
     Indication: BURKITT^S LYMPHOMA STAGE IV
     Dosage: ON DAYS 2 AND 6 PRENATAL PHASE
     Route: 064
  13. DOXORUBICIN [Suspect]
     Active Substance: DOXORUBICIN
     Indication: BURKITT^S LYMPHOMA
     Dosage: 50 MG/M2, CYCLIC, OVER 30 MIN ON DAY 2 OF 21 DAYS CYCLE (AS A PART OF R?CHOEP REGIMEN)
     Route: 064

REACTIONS (9)
  - Foetal growth restriction [Recovered/Resolved]
  - Low birth weight baby [Unknown]
  - Plasma cells decreased [Not Recovered/Not Resolved]
  - Bacterial infection [Recovered/Resolved]
  - Small for dates baby [Unknown]
  - Hypogammaglobulinaemia [Recovered/Resolved]
  - Combined immunodeficiency [Recovered/Resolved]
  - Foetal exposure during pregnancy [Unknown]
  - B-lymphocyte count decreased [Not Recovered/Not Resolved]
